FAERS Safety Report 7735149-9 (Version None)
Quarter: 2011Q3

REPORT INFORMATION
  Report Type: 
  Country: None (occurrence: None)
  Receive Date: 20110907
  Receipt Date: 20110830
  Transmission Date: 20111222
  Serious: Yes (Hospitalization)
  Sender: FDA-Public Use
  Company Number: US-ABBOTT-11P-163-0850963-00

PATIENT
  Sex: Female
  Weight: 50.394 kg

DRUGS (7)
  1. CLONAZEPAM [Concomitant]
     Indication: ANXIETY
  2. HUMIRA [Suspect]
     Indication: CROHN'S DISEASE
     Dates: start: 20090101
  3. CYCLOBENZAPRINE [Concomitant]
     Indication: MUSCLE SPASMS
  4. CLONAZEPAM [Concomitant]
     Indication: ANXIOLYTIC THERAPY
  5. HYDROXYZINE [Concomitant]
     Indication: INSOMNIA
  6. CHLORDIAZEPOXIDE [Concomitant]
     Indication: GASTRIC DISORDER
     Dosage: 1/2 HOUR BEFORE EATING
  7. OXYBUTYNIN [Concomitant]
     Indication: MUSCLE RELAXANT THERAPY

REACTIONS (9)
  - ASTHENIA [None]
  - BLOOD POTASSIUM DECREASED [None]
  - PAIN [None]
  - MUSCLE ATROPHY [None]
  - DIARRHOEA [None]
  - CROHN'S DISEASE [None]
  - HYPOTENSION [None]
  - HEADACHE [None]
  - VOMITING [None]
